FAERS Safety Report 9525111 (Version 2)
Quarter: 2013Q4

REPORT INFORMATION
  Report Type: Report from Study
  Country: GB (occurrence: GB)
  Receive Date: 20130916
  Receipt Date: 20131107
  Transmission Date: 20140711
  Serious: Yes (Hospitalization, Other)
  Sender: FDA-Public Use
  Company Number: GB-JNJFOC-20130906304

PATIENT
  Age: 32 Year
  Sex: Female
  Weight: 97 kg

DRUGS (10)
  1. SIMPONI [Suspect]
     Indication: PSORIATIC ARTHROPATHY
     Route: 058
     Dates: start: 20130604, end: 20130901
  2. MTX [Concomitant]
     Route: 065
  3. PREGABALIN [Concomitant]
     Route: 065
  4. DULOXETINE [Concomitant]
     Route: 065
  5. FLUTICASONE [Concomitant]
     Route: 065
  6. CELECOXIB [Concomitant]
     Route: 065
  7. RISPERIDONE [Concomitant]
     Route: 065
  8. DEPAKOTE [Concomitant]
     Route: 065
  9. THYROXINE [Concomitant]
     Route: 065
  10. VENTOLIN [Concomitant]
     Route: 055

REACTIONS (2)
  - Urinary tract infection [Recovered/Resolved]
  - Irritable bowel syndrome [Recovered/Resolved]
